FAERS Safety Report 5020917-7 (Version None)
Quarter: 2006Q2

REPORT INFORMATION
  Report Type: 
  Country: None (occurrence: None)
  Receive Date: 20060607
  Receipt Date: 20060607
  Transmission Date: 20061013
  Serious: Yes (Life-Threatening)
  Sender: FDA-Public Use
  Company Number: None

PATIENT
  Age: 61 Year
  Sex: Female
  Weight: 68.0396 kg

DRUGS (5)
  1. FORTEO [Suspect]
     Indication: OSTEOPOROSIS
     Dosage: 750MG  DAILY  INJECTION
     Dates: start: 20051201, end: 20060301
  2. SECTRAL [Concomitant]
  3. ASPIRIN [Concomitant]
  4. KLONAZEPINE [Concomitant]
  5. CALCIUM GLUCONATE [Concomitant]

REACTIONS (5)
  - ABDOMINAL PAIN [None]
  - CEREBROVASCULAR ACCIDENT [None]
  - CHEST PAIN [None]
  - DIZZINESS [None]
  - FATIGUE [None]
